FAERS Safety Report 22025519 (Version 1)
Quarter: 2023Q1

REPORT INFORMATION
  Report Type: Spontaneous
  Country: US (occurrence: US)
  Receive Date: 20230223
  Receipt Date: 20230223
  Transmission Date: 20230417
  Serious: No
  Sender: FDA-Public Use
  Company Number: US-drreddys-LIT/USA/23/0161249

PATIENT
  Age: 67 Year
  Sex: Female

DRUGS (1)
  1. SODIUM NITROPRUSSIDE [Suspect]
     Active Substance: SODIUM NITROPRUSSIDE
     Indication: Vasoconstriction
     Route: 013

REACTIONS (2)
  - Product use in unapproved indication [Unknown]
  - Product use issue [Unknown]
